FAERS Safety Report 7950332-5 (Version None)
Quarter: 2011Q4

REPORT INFORMATION
  Report Type: 
  Country: None (occurrence: None)
  Receive Date: 20111130
  Receipt Date: 20111116
  Transmission Date: 20120403
  Serious: Yes (Death, Life-Threatening)
  Sender: FDA-Public Use
  Company Number: JP-AMGEN-JPNCT2011055923

PATIENT
  Age: 74 Year
  Sex: Male

DRUGS (16)
  1. FLUOROURACIL [Concomitant]
     Route: 041
     Dates: start: 20110510
  2. LEVOLEUCOVORIN CALCIUM [Concomitant]
     Route: 041
     Dates: start: 20110510
  3. AMARYL [Concomitant]
     Dosage: UNK UNK, QD
     Route: 048
     Dates: start: 20110423, end: 20110711
  4. OXALIPLATIN [Concomitant]
     Indication: COLORECTAL CANCER
     Route: 041
     Dates: start: 20110511
  5. DIOVAN [Concomitant]
     Dosage: UNK UNK, QD
     Route: 048
     Dates: start: 20110423, end: 20110711
  6. OXALIPLATIN [Concomitant]
     Route: 041
     Dates: start: 20110510
  7. FLUOROURACIL [Concomitant]
     Route: 041
     Dates: start: 20110511
  8. AZULENE-GLUTAMINE [Concomitant]
     Route: 048
     Dates: start: 20110423, end: 20110711
  9. LASIX [Concomitant]
     Route: 048
     Dates: start: 20110423, end: 20110711
  10. FLUOROURACIL [Concomitant]
     Route: 040
     Dates: start: 20110510
  11. LEVOLEUCOVORIN CALCIUM [Concomitant]
     Indication: COLORECTAL CANCER
     Route: 041
     Dates: start: 20110511
  12. MAGMITT [Concomitant]
     Dosage: UNK UNK, TID
     Route: 048
     Dates: start: 20110423, end: 20110711
  13. SITAGLIPTIN PHOSPHATE [Concomitant]
     Dosage: UNK UNK, QD
     Route: 048
     Dates: start: 20110423, end: 20110711
  14. PANITUMUMAB [Suspect]
     Indication: COLORECTAL CANCER
     Dosage: 300 MG, Q2WK
     Route: 041
     Dates: start: 20110511
  15. FLUOROURACIL [Concomitant]
     Indication: COLORECTAL CANCER
     Route: 040
     Dates: start: 20110511
  16. GANATON [Concomitant]
     Dosage: UNK UNK, TID
     Route: 048
     Dates: start: 20110423, end: 20110711

REACTIONS (2)
  - COLORECTAL CANCER [None]
  - ENTEROCOLITIS [None]
